FAERS Safety Report 19947473 (Version 1)
Quarter: 2021Q4

REPORT INFORMATION
  Report Type: Spontaneous
  Country: IT (occurrence: IT)
  Receive Date: 20211013
  Receipt Date: 20211013
  Transmission Date: 20220303
  Serious: Yes (Hospitalization, Other)
  Sender: FDA-Public Use
  Company Number: IT-INFO-001336

PATIENT
  Age: 12 Year
  Sex: Male

DRUGS (2)
  1. MIDAZOLAM [Suspect]
     Active Substance: MIDAZOLAM
     Indication: Anaesthesia
     Route: 040
  2. SEVOFLURANE [Suspect]
     Active Substance: SEVOFLURANE
     Dosage: CONTINUOUS INHALED SEVOFLURANE
     Route: 055

REACTIONS (1)
  - Kounis syndrome [Recovered/Resolved]
